FAERS Safety Report 9384039 (Version 1)
Quarter: 2013Q3

REPORT INFORMATION
  Report Type: Spontaneous
  Country: US (occurrence: US)
  Receive Date: 20130705
  Receipt Date: 20130705
  Transmission Date: 20140515
  Serious: Yes (Death, Other)
  Sender: FDA-Public Use
  Company Number: US-JNJFOC-20130617118

PATIENT
  Sex: Female

DRUGS (5)
  1. DOXORUBICIN [Suspect]
     Indication: BREAST CANCER
     Route: 042
  2. CYCLOPHOSPHAMIDE [Suspect]
     Indication: BREAST CANCER
     Route: 065
  3. CARBOPLATIN [Suspect]
     Indication: BREAST CANCER
     Dosage: AUC 2 IN REGIMEN 3 AND AUC 5 IN REGIMEN 4 AND 5
     Route: 065
  4. DOCETAXEL [Suspect]
     Indication: BREAST CANCER
     Dosage: 70 MG/M2, IN REGIMEN 1, 2 4 AND 5, AND 35 MG/M2 IN REGIMEN 3
     Route: 065
  5. CISPLATIN [Suspect]
     Indication: BREAST CANCER
     Route: 065

REACTIONS (3)
  - Breast cancer [Fatal]
  - Death [Fatal]
  - Disease progression [Unknown]
